FAERS Safety Report 4695757-9 (Version None)
Quarter: 2005Q2

REPORT INFORMATION
  Report Type: 
  Country: None (occurrence: None)
  Receive Date: 20050621
  Receipt Date: 20050610
  Transmission Date: 20051028
  Serious: Yes (Hospitalization)
  Sender: FDA-Public Use
  Company Number: AT-BRISTOL-MYERS SQUIBB COMPANY-12999959

PATIENT
  Age: 32 Year
  Sex: Female
  Weight: 45 kg

DRUGS (1)
  1. ABILIFY [Suspect]
     Indication: SCHIZOPHRENIA, DISORGANISED TYPE
     Route: 048
     Dates: start: 20050325, end: 20050406

REACTIONS (2)
  - CATATONIA [None]
  - EXTRAPYRAMIDAL DISORDER [None]
